FAERS Safety Report 8872257 (Version 2)
Quarter: 2014Q2

REPORT INFORMATION
  Report Type: Spontaneous
  Country: US (occurrence: US)
  Receive Date: 20121029
  Receipt Date: 20140404
  Transmission Date: 20141212
  Serious: Yes (Death, Other)
  Sender: FDA-Public Use
  Company Number: US-CELGENEUS-163-20785-12102948

PATIENT
  Sex: 0

DRUGS (2)
  1. THALOMID [Suspect]
     Indication: GLIOBLASTOMA
     Dosage: 200 MILLIGRAM
     Route: 048
  2. THALOMID [Suspect]
     Dosage: 100MG-200 TO 1,200MG
     Route: 048

REACTIONS (40)
  - Death [Fatal]
  - Encephalopathy [Unknown]
  - Endocrine disorder [Unknown]
  - Cranial nerve injury [Unknown]
  - Speech disorder [Unknown]
  - Bone marrow disorder [Unknown]
  - Lung disorder [Unknown]
  - Gastrointestinal disorder [Unknown]
  - Recall phenomenon [Unknown]
  - Metabolic disorder [Unknown]
  - Renal disorder [Unknown]
  - Peripheral motor neuropathy [Unknown]
  - Liver disorder [Unknown]
  - Visual pathway disorder [Unknown]
  - Ataxia [Unknown]
  - Hearing impaired [Unknown]
  - Confusional state [Unknown]
  - Headache [Unknown]
  - Hypertension [Unknown]
  - Amnesia [Unknown]
  - Insomnia [Unknown]
  - Arrhythmia [Unknown]
  - Fatigue [Unknown]
  - Thrombosis [Unknown]
  - Skin reaction [Unknown]
  - Convulsion [Unknown]
  - Constipation [Unknown]
  - Nausea [Unknown]
  - Vomiting [Unknown]
  - Depression [Unknown]
  - Dizziness [Unknown]
  - Tremor [Unknown]
  - Vertigo [Unknown]
  - Hypersensitivity [Unknown]
  - Oedema [Unknown]
  - Infection [Unknown]
  - Febrile neutropenia [Unknown]
  - Depressed level of consciousness [Unknown]
  - Glioblastoma multiforme [Unknown]
  - Peripheral sensory neuropathy [Unknown]
